FAERS Safety Report 20236069 (Version 1)
Quarter: 2021Q4

REPORT INFORMATION
  Report Type: Spontaneous
  Country: US (occurrence: US)
  Receive Date: 20211228
  Receipt Date: 20211228
  Transmission Date: 20220303
  Serious: Yes (Other)
  Sender: FDA-Public Use
  Company Number: US-AMGEN-USASP2021203523

PATIENT
  Age: 53 Year
  Sex: Male

DRUGS (1)
  1. REPATHA [Suspect]
     Active Substance: EVOLOCUMAB
     Indication: Low density lipoprotein increased
     Dosage: 140 MILLIGRAM, Q2WK
     Route: 065
     Dates: start: 202103, end: 20211216

REACTIONS (4)
  - Urticaria [Recovering/Resolving]
  - Pyrexia [Recovering/Resolving]
  - Blood creatinine increased [Recovering/Resolving]
  - White blood cell count increased [Recovering/Resolving]

NARRATIVE: CASE EVENT DATE: 20210101
